FAERS Safety Report 6530377-2 (Version None)
Quarter: 2010Q1

REPORT INFORMATION
  Report Type: 
  Country: None (occurrence: None)
  Receive Date: 20100107
  Receipt Date: 20091229
  Transmission Date: 20100710
  Serious: Yes (Hospitalization)
  Sender: FDA-Public Use
  Company Number: US-ELI_LILLY_AND_COMPANY-US200912006306

PATIENT
  Sex: Female

DRUGS (2)
  1. FORTEO [Suspect]
     Indication: OSTEOPOROSIS
     Dosage: 20 UG, DAILY (1/D)
     Dates: start: 20091001
  2. CALCIUM WITH VITAMIN D [Concomitant]
     Dosage: 1200 MG, DAILY (1/D)

REACTIONS (3)
  - LUMBAR VERTEBRAL FRACTURE [None]
  - PAIN [None]
  - THORACIC VERTEBRAL FRACTURE [None]
